FAERS Safety Report 6081919-5 (Version None)
Quarter: 2009Q1

REPORT INFORMATION
  Report Type: 
  Country: None (occurrence: None)
  Receive Date: 20090218
  Receipt Date: 20080527
  Transmission Date: 20090719
  Serious: No
  Sender: FDA-Public Use
  Company Number: US-BRISTOL-MYERS SQUIBB COMPANY-14207260

PATIENT
  Sex: Female

DRUGS (6)
  1. GLUCOPHAGE [Suspect]
  2. AVANDIA [Suspect]
  3. FORTAMET [Suspect]
  4. JANUVIA [Suspect]
  5. GLIPIZIDE [Suspect]
  6. BYETTA [Suspect]

REACTIONS (1)
  - DRUG HYPERSENSITIVITY [None]
